FAERS Safety Report 8094171-6 (Version None)
Quarter: 2012Q1

REPORT INFORMATION
  Report Type: 
  Country: None (occurrence: None)
  Receive Date: 20120130
  Receipt Date: 20120130
  Transmission Date: 20120608
  Serious: Yes (Hospitalization)
  Sender: FDA-Public Use
  Company Number: None

PATIENT
  Age: 32 Year
  Sex: Female
  Weight: 98.429 kg

DRUGS (1)
  1. ENBREL [Suspect]
     Indication: RHEUMATOID ARTHRITIS
     Dosage: 1 UNIT
     Route: 058
     Dates: start: 20111220, end: 20120119

REACTIONS (7)
  - FEELING HOT [None]
  - RHEUMATOID ARTHRITIS [None]
  - GAIT DISTURBANCE [None]
  - CELLULITIS [None]
  - INJECTION SITE ERYTHEMA [None]
  - CONDITION AGGRAVATED [None]
  - BLISTER [None]
